FAERS Safety Report 9750904 (Version 2)
Quarter: 2013Q4

REPORT INFORMATION
  Report Type: Spontaneous
  Country: US (occurrence: US)
  Receive Date: 20131212
  Receipt Date: 20131213
  Transmission Date: 20140711
  Serious: Yes (Other)
  Sender: FDA-Public Use
  Company Number: US-TEVA-402369USA

PATIENT
  Age: 22 Year
  Sex: Female
  Weight: 65.83 kg

DRUGS (4)
  1. PARAGARD 380A [Suspect]
     Indication: CONTRACEPTION
     Route: 015
     Dates: start: 20130206, end: 20130319
  2. PARAGARD 380A [Suspect]
     Route: 015
     Dates: start: 20130319, end: 20130327
  3. SYNTHROID [Concomitant]
     Indication: HYPOTHYROIDISM
     Dates: start: 20111116, end: 20130415
  4. VINATE GT [Concomitant]
     Dosage: 1 MILLIGRAM DAILY;
     Dates: start: 20130327

REACTIONS (5)
  - Pregnancy [Unknown]
  - Drug ineffective [Unknown]
  - Device dislocation [Recovered/Resolved]
  - Metrorrhagia [Unknown]
  - Device expulsion [Recovered/Resolved]
